FAERS Safety Report 14865039 (Version 1)
Quarter: 2018Q2

REPORT INFORMATION
  Report Type: Spontaneous
  Country: US (occurrence: US)
  Receive Date: 20180508
  Receipt Date: 20180508
  Transmission Date: 20180711
  Serious: No
  Sender: FDA-Public Use
  Company Number: US-ALKERMES INC.-ALK-2017-003397

PATIENT
  Age: 31 Year
  Sex: Male

DRUGS (1)
  1. VIVITROL [Suspect]
     Active Substance: NALTREXONE
     Indication: DRUG DEPENDENCE
     Dosage: 380 MG, QMO
     Route: 030
     Dates: start: 20170810

REACTIONS (12)
  - Diarrhoea [Unknown]
  - Product administered at inappropriate site [Unknown]
  - Injection site paraesthesia [Recovered/Resolved]
  - Anxiety [Unknown]
  - Insomnia [Not Recovered/Not Resolved]
  - Influenza [Unknown]
  - Asthenia [Unknown]
  - Injection site reaction [Recovered/Resolved]
  - Restless legs syndrome [Not Recovered/Not Resolved]
  - Feeling abnormal [Unknown]
  - Body temperature increased [Unknown]
  - Weight decreased [Unknown]

NARRATIVE: CASE EVENT DATE: 20170810
